FAERS Safety Report 11113892 (Version 2)
Quarter: 2015Q2

REPORT INFORMATION
  Report Type: Report from Study
  Country: BE (occurrence: BE)
  Receive Date: 20150514
  Receipt Date: 20150630
  Transmission Date: 20150821
  Serious: Yes (Hospitalization)
  Sender: FDA-Public Use
  Company Number: BE-ABBVIE-14P-013-1318587-00

PATIENT
  Age: 82 Year
  Sex: Male

DRUGS (6)
  1. DUODOPA [Suspect]
     Active Substance: CARBIDOPA\LEVODOPA
     Dosage: AM DOSE=2ML, CD=5.2ML/H FOR 16HRS,ND=2.8ML/H FOR 8HRS AND ED=4ML
     Route: 050
     Dates: start: 20141202, end: 20141204
  2. DUODOPA [Suspect]
     Active Substance: CARBIDOPA\LEVODOPA
     Dosage: AM DOSE=0ML, CD=5.3ML/H FOR 16HRS, ND=2.8ML/H FOR 8HRS AND ED=4ML
     Route: 050
     Dates: start: 20150629
  3. DUODOPA [Suspect]
     Active Substance: CARBIDOPA\LEVODOPA
     Dosage: AM DOSE=1ML, CD=4.8ML/H FOR 16HRS, ND=2.5ML/H FOR 8HRS AND ED=2ML
     Route: 050
     Dates: start: 20141204, end: 20150629
  4. DUODOPA [Suspect]
     Active Substance: CARBIDOPA\LEVODOPA
     Indication: PARKINSON^S DISEASE
     Dosage: AM DOSE=1ML, CD=4.5ML/H FOR 16HRS, ND=2.5ML/H FOR 8HRS AND ED=2ML
     Route: 050
     Dates: start: 20130212, end: 20130627
  5. DUODOPA [Suspect]
     Active Substance: CARBIDOPA\LEVODOPA
     Dosage: AM DOSE=1ML, CD=4.8ML/H FOR 16HRS, ND=2.5ML/H FOR 8HRS AND ED=2ML
     Route: 050
     Dates: start: 20140314, end: 20141202
  6. DUODOPA [Suspect]
     Active Substance: CARBIDOPA\LEVODOPA
     Dosage: DOSAGE CONTINUOUSLY MONITORED AND ADJUSTED
     Route: 050
     Dates: start: 20130627, end: 20140314

REACTIONS (9)
  - Limb immobilisation [Unknown]
  - On and off phenomenon [Not Recovered/Not Resolved]
  - Abasia [Unknown]
  - Parkinson^s disease [Recovered/Resolved]
  - Gait disturbance [Unknown]
  - Parkinsonian gait [Unknown]
  - Freezing phenomenon [Unknown]
  - Dyskinesia [Unknown]
  - On and off phenomenon [Unknown]

NARRATIVE: CASE EVENT DATE: 20141202
